FAERS Safety Report 4530642-4 (Version None)
Quarter: 2004Q4

REPORT INFORMATION
  Report Type: 
  Country: None (occurrence: None)
  Receive Date: 20041217
  Receipt Date: 20041209
  Transmission Date: 20050328
  Serious: Yes (Death, Hospitalization)
  Sender: FDA-Public Use
  Company Number: FR-ABBOTT-04P-056-0283040-00

PATIENT
  Age: 36 Year
  Sex: Male
  Weight: 80 kg

DRUGS (6)
  1. KALETRA [Suspect]
     Indication: HIV INFECTION
     Dates: end: 20041001
  2. ZIDOVUDINE W/LAMIVUDINE [Suspect]
     Indication: HIV INFECTION
     Route: 048
     Dates: end: 20041001
  3. RIBAVIRIN [Suspect]
     Indication: HEPATITIS B
     Route: 048
     Dates: end: 20041001
  4. PERINTERFERON [Suspect]
     Indication: HEPATITIS B
     Route: 058
  5. BUPRENORPHINE [Suspect]
     Indication: DRUG ABUSER
     Route: 048
     Dates: end: 20041001
  6. GABAPENTIN [Suspect]
     Indication: DRUG USE FOR UNKNOWN INDICATION
     Route: 048
     Dates: end: 20041001

REACTIONS (2)
  - ENCEPHALOPATHY [None]
  - HEPATIC FAILURE [None]
